FAERS Safety Report 7202790-1 (Version None)
Quarter: 2010Q4

REPORT INFORMATION
  Report Type: 
  Country: None (occurrence: None)
  Receive Date: 20101229
  Receipt Date: 20100908
  Transmission Date: 20110411
  Serious: No
  Sender: FDA-Public Use
  Company Number: US-BAUSCH-2010BL005059

PATIENT
  Age: 49 Year

DRUGS (7)
  1. BESIVANCE [Suspect]
     Indication: PHOTOREFRACTIVE KERATECTOMY
     Route: 047
     Dates: start: 20100903
  2. BESIVANCE [Suspect]
     Indication: OFF LABEL USE
     Route: 047
     Dates: start: 20100903
  3. PRILOSEC [Concomitant]
  4. CYMBALTA [Concomitant]
  5. WELLBUTRIN [Concomitant]
  6. LOTEMAX [Concomitant]
  7. PRESERVATIVE FREE ARTIFICIAL TEARS [Concomitant]

REACTIONS (1)
  - IMPAIRED HEALING [None]
